FAERS Safety Report 11174954 (Version 1)
Quarter: 2015Q2

REPORT INFORMATION
  Report Type: Spontaneous
  Country: US (occurrence: None)
  Receive Date: 20150608
  Receipt Date: 20150608
  Transmission Date: 20150821
  Serious: Yes (Other)
  Sender: FDA-Public Use
  Company Number: None

PATIENT
  Age: 73 Year
  Sex: Female
  Weight: 58.97 kg

DRUGS (7)
  1. ANASTROZOLE. [Suspect]
     Active Substance: ANASTROZOLE
     Indication: BREAST CANCER
     Dosage: BY MOUTH; 30 TABS.
     Dates: start: 20140724, end: 201503
  2. VITAMIN B12 [Concomitant]
     Active Substance: CYANOCOBALAMIN
  3. SIMVASTATIN. [Concomitant]
     Active Substance: SIMVASTATIN
  4. FISH CAPS. [Concomitant]
  5. REFRESH EYE DROPS [Concomitant]
  6. MULTIVITAMIN [Concomitant]
     Active Substance: VITAMINS
  7. VITAMIN C [Concomitant]
     Active Substance: ASCORBIC ACID

REACTIONS (8)
  - Blister [None]
  - Paraesthesia [None]
  - Product quality issue [None]
  - Headache [None]
  - Syncope [None]
  - Skin exfoliation [None]
  - Vomiting [None]
  - Abdominal pain upper [None]

NARRATIVE: CASE EVENT DATE: 201503
